FAERS Safety Report 5387736-3 (Version None)
Quarter: 2007Q3

REPORT INFORMATION
  Report Type: 
  Country: None (occurrence: None)
  Receive Date: 20070716
  Receipt Date: 20070710
  Transmission Date: 20080115
  Serious: Yes (Hospitalization, Disabling)
  Sender: FDA-Public Use
  Company Number: B0472198A

PATIENT
  Age: 78 Year
  Sex: Female
  Weight: 39 kg

DRUGS (9)
  1. VALTREX [Suspect]
     Indication: HERPES ZOSTER
     Dosage: 500MG PER DAY
     Route: 048
     Dates: start: 20070512, end: 20070512
  2. CALTAN [Concomitant]
     Route: 048
  3. MEVAN [Concomitant]
     Route: 048
  4. PARIET [Concomitant]
     Indication: GASTRIC ULCER
     Route: 048
  5. ISOSORBIDE DINITRATE [Concomitant]
     Indication: ANGINA PECTORIS
     Route: 048
  6. CALBLOCK [Concomitant]
     Indication: ANGINA PECTORIS
     Route: 048
  7. ARGAMATE [Concomitant]
     Dosage: 75MG PER DAY
     Route: 048
  8. SENNOSIDE [Concomitant]
     Indication: CONSTIPATION
     Route: 048
  9. NIPOLAZIN [Concomitant]
     Indication: PRURITUS
     Route: 048

REACTIONS (8)
  - ABNORMAL BEHAVIOUR [None]
  - BLOOD CREATININE INCREASED [None]
  - DISORIENTATION [None]
  - DYSARTHRIA [None]
  - HAEMOGLOBIN DECREASED [None]
  - MALAISE [None]
  - MUSCULAR WEAKNESS [None]
  - RED BLOOD CELL COUNT DECREASED [None]
